FAERS Safety Report 7971584-1 (Version None)
Quarter: 2011Q4

REPORT INFORMATION
  Report Type: 
  Country: None (occurrence: None)
  Receive Date: 20111212
  Receipt Date: 20111201
  Transmission Date: 20120403
  Serious: Yes (Hospitalization, Other)
  Sender: FDA-Public Use
  Company Number: US-ASTRAZENECA-2010SE28164

PATIENT
  Age: 45 Year
  Sex: Male
  Weight: 77.1 kg

DRUGS (8)
  1. SEROQUEL [Suspect]
     Indication: SCHIZOPHRENIA
     Route: 048
     Dates: start: 20020101
  2. SEROQUEL [Suspect]
     Route: 048
  3. FOLAXEN [Concomitant]
     Dosage: 40
  4. SEROQUEL [Suspect]
     Indication: BIPOLAR DISORDER
     Route: 048
     Dates: start: 20020101
  5. SEROQUEL [Suspect]
     Route: 048
  6. SEROQUEL [Suspect]
     Route: 048
  7. SEROQUEL [Suspect]
     Route: 048
  8. BONISMISID [Concomitant]

REACTIONS (5)
  - CONVULSION [None]
  - ALCOHOLISM [None]
  - INSOMNIA [None]
  - HALLUCINATION [None]
  - DRUG DOSE OMISSION [None]
